FAERS Safety Report 6387641-X (Version None)
Quarter: 2009Q3

REPORT INFORMATION
  Report Type: 
  Country: None (occurrence: None)
  Receive Date: 20090930
  Receipt Date: 20090914
  Transmission Date: 20100115
  Serious: Yes (Other)
  Sender: FDA-Public Use
  Company Number: DEP_00268_2009

PATIENT
  Sex: Female
  Weight: 111.1313 kg

DRUGS (22)
  1. METFORMIN HYDROCHLORIDE [Suspect]
     Indication: BLOOD TESTOSTERONE ABNORMAL
     Dosage: 1000 MG ORAL
     Route: 048
     Dates: start: 20040101
  2. METFORMIN HYDROCHLORIDE [Suspect]
     Indication: OFF LABEL USE
     Dosage: 1000 MG ORAL
     Route: 048
     Dates: start: 20040101
  3. ADVAIR HFA [Suspect]
     Indication: ASTHMA
     Dosage: 1 DF BID, 500/50 ?G RESPIRATORY (INHALATION)
     Route: 055
     Dates: start: 20081101, end: 20090531
  4. ADVAIR HFA [Suspect]
     Indication: BRONCHITIS
     Dosage: 1 DF BID, 500/50 ?G RESPIRATORY (INHALATION)
     Route: 055
     Dates: start: 20081101, end: 20090531
  5. ADVAIR HFA [Suspect]
     Indication: WHEEZING
     Dosage: 1 DF BID, 500/50 ?G RESPIRATORY (INHALATION)
     Route: 055
     Dates: start: 20081101, end: 20090531
  6. WELLBUTRIN XL [Suspect]
     Indication: DEPRESSION
     Dosage: 150 MG ORAL
     Route: 048
     Dates: start: 20040101
  7. PRIMIDONE [Suspect]
     Indication: EPILEPSY
     Dosage: DF ORAL, 250 MG TID OR QID ORAL
     Route: 048
     Dates: end: 20010101
  8. PRIMIDONE [Suspect]
     Indication: EPILEPSY
     Dosage: DF ORAL, 250 MG TID OR QID ORAL
     Route: 048
  9. LITHIUM CARBONATE [Suspect]
     Indication: MOOD SWINGS
     Dosage: 600 MG ORAL
     Route: 048
     Dates: start: 20040101
  10. ESTRADIOL [Suspect]
     Indication: HYSTERECTOMY
     Dosage: 4 MG ORAL
     Route: 048
     Dates: start: 20060101
  11. DICYCLOMIDE HYDROCHLORIDE [Suspect]
     Indication: DYSPEPSIA
     Dosage: 40 MG ORAL
     Route: 048
     Dates: start: 20070101
  12. RELPAX [Suspect]
     Indication: MIGRAINE
     Dosage: 20 MG ORAL
     Route: 048
     Dates: start: 20030101
  13. PREVACID [Suspect]
     Indication: DYSPEPSIA
     Dosage: 60 MG ORAL
     Route: 048
     Dates: start: 20030101
  14. BUPROPION HYDROCHLORIDE [Suspect]
     Indication: SEASONAL AFFECTIVE DISORDER
     Dosage: 75 MG ORAL
     Route: 048
     Dates: start: 20010101
  15. CLOTRIMAZOLE [Suspect]
     Indication: FUNGAL INFECTION
     Dosage: DF
     Dates: start: 20070101
  16. PAXIL [Suspect]
     Indication: DRUG USE FOR UNKNOWN INDICATION
     Dosage: DF
  17. XOPENEX [Concomitant]
  18. CARAFATE [Concomitant]
  19. MICONAZOLE NITRATE [Concomitant]
  20. LITHIUM SALT [Concomitant]
  21. BUSPIRONE HCL [Concomitant]
  22. TRANSDERMA /00003201/ [Concomitant]

REACTIONS (26)
  - AGITATION [None]
  - ALLERGY TO VACCINE [None]
  - APNOEA [None]
  - ASTHMA [None]
  - BLINDNESS TRANSIENT [None]
  - BLOOD TESTOSTERONE ABNORMAL [None]
  - BRONCHITIS [None]
  - DEAFNESS [None]
  - DEAFNESS TRANSITORY [None]
  - DEPRESSION [None]
  - DRUG HYPERSENSITIVITY [None]
  - DYSPEPSIA [None]
  - FEELING ABNORMAL [None]
  - FUNGAL INFECTION [None]
  - GALLBLADDER DISORDER [None]
  - HYPERACUSIS [None]
  - HYPOGLYCAEMIA [None]
  - JAW DISORDER [None]
  - LOSS OF CONSCIOUSNESS [None]
  - MIGRAINE [None]
  - MULTIPLE ALLERGIES [None]
  - ONYCHOMYCOSIS [None]
  - RESPIRATORY DISORDER [None]
  - SEASONAL AFFECTIVE DISORDER [None]
  - SINUSITIS [None]
  - SWELLING [None]
